FAERS Safety Report 9937645 (Version 3)
Quarter: 2014Q1

REPORT INFORMATION
  Report Type: Report from Study
  Country: CA (occurrence: CA)
  Receive Date: 20140303
  Receipt Date: 20140319
  Transmission Date: 20141002
  Serious: Yes (Other)
  Sender: FDA-Public Use
  Company Number: CA-ROCHE-1147454

PATIENT
  Age: 46 Year
  Sex: Female
  Weight: 88 kg

DRUGS (5)
  1. ACTEMRA [Suspect]
     Indication: RHEUMATOID ARTHRITIS
     Route: 042
     Dates: start: 20120912
  2. LOSEC [Concomitant]
  3. ELTROXIN [Concomitant]
  4. NAPROXEN [Concomitant]
  5. EFFEXOR [Concomitant]

REACTIONS (14)
  - Nasopharyngitis [Not Recovered/Not Resolved]
  - Chest pain [Not Recovered/Not Resolved]
  - Colitis [Not Recovered/Not Resolved]
  - Lung infection [Recovered/Resolved]
  - Weight decreased [Recovered/Resolved]
  - Dental caries [Not Recovered/Not Resolved]
  - Rheumatoid arthritis [Not Recovered/Not Resolved]
  - Vessel puncture site bruise [Recovered/Resolved]
  - Injection site pain [Recovered/Resolved]
  - Vaginal haemorrhage [Unknown]
  - Haemoglobin decreased [Unknown]
  - Uterine leiomyoma [Unknown]
  - Endometrial hypertrophy [Unknown]
  - Stomatitis [Recovering/Resolving]
